FAERS Safety Report 10482520 (Version 3)
Quarter: 2014Q4

REPORT INFORMATION
  Report Type: Report from Study
  Country: CA (occurrence: CA)
  Receive Date: 20140929
  Receipt Date: 20141112
  Transmission Date: 20150528
  Serious: Yes (Hospitalization)
  Sender: FDA-Public Use
  Company Number: CA-ABBVIE-14P-028-1268347-00

PATIENT
  Sex: Male

DRUGS (2)
  1. PREDNISONE. [Concomitant]
     Active Substance: PREDNISONE
     Indication: CROHN^S DISEASE
  2. HUMIRA [Suspect]
     Active Substance: ADALIMUMAB
     Indication: CROHN^S DISEASE
     Route: 058
     Dates: start: 20110221, end: 201407

REACTIONS (3)
  - Intestinal resection [Recovered/Resolved]
  - Crohn^s disease [Unknown]
  - Infection [Recovered/Resolved]

NARRATIVE: CASE EVENT DATE: 2014
